FAERS Safety Report 7558189-1 (Version None)
Quarter: 2011Q2

REPORT INFORMATION
  Report Type: 
  Country: None (occurrence: None)
  Receive Date: 20110620
  Receipt Date: 20110607
  Transmission Date: 20111010
  Serious: Yes (Other)
  Sender: FDA-Public Use
  Company Number: FR-MYLANLABS-2011S1011616

PATIENT
  Age: 49 Year
  Sex: Male

DRUGS (1)
  1. ACEBUTOLOL [Suspect]
     Indication: PRODUCT USED FOR UNKNOWN INDICATION
     Route: 048
     Dates: start: 20101201, end: 20101201

REACTIONS (2)
  - DRUG NAME CONFUSION [None]
  - DRUG DISPENSING ERROR [None]
